FAERS Safety Report 4953923-9 (Version None)
Quarter: 2006Q1

REPORT INFORMATION
  Report Type: 
  Country: None (occurrence: None)
  Receive Date: 20060327
  Receipt Date: 20050301
  Transmission Date: 20060701
  Serious: Yes (Hospitalization, Other)
  Sender: FDA-Public Use
  Company Number: DE-BRISTOL-MYERS SQUIBB COMPANY-13304688

PATIENT
  Sex: Male
  Weight: 63 kg

DRUGS (20)
  1. VIDEX [Suspect]
     Indication: HIV INFECTION
     Dates: start: 19970101
  2. ZERIT [Suspect]
     Indication: HIV INFECTION
     Dates: start: 20000101
  3. SUSTIVA [Suspect]
     Indication: HIV INFECTION
     Dates: start: 20000101, end: 20040901
  4. REYATAZ [Suspect]
     Indication: HIV INFECTION
     Dates: start: 20041001
  5. ZIDOVUDINE [Suspect]
     Indication: HIV INFECTION
     Dates: start: 19880101
  6. INDINIVIR SULFATE [Suspect]
     Indication: HIV INFECTION
     Dates: start: 19970101
  7. LAMIVUDINE [Suspect]
     Indication: HIV INFECTION
     Dates: start: 20000101, end: 20040901
  8. NELFINAVIR [Suspect]
     Indication: HIV INFECTION
     Dates: start: 20000101
  9. LOPINAVIR [Suspect]
     Indication: HIV INFECTION
     Dates: start: 20020101, end: 20030101
  10. AMPRENAVIR [Suspect]
     Indication: HIV INFECTION
     Dates: start: 20020101, end: 20030101
  11. RITONAVIR [Suspect]
     Indication: HIV INFECTION
     Dates: start: 20020101
  12. TENOFOVIR [Suspect]
     Dates: start: 20030101, end: 20040901
  13. ENFUVIRTIDE [Suspect]
     Indication: HIV INFECTION
     Dates: start: 20030901
  14. SAQUINAVIR [Suspect]
     Dates: start: 20041001
  15. TMC114 [Suspect]
     Indication: HIV INFECTION
     Dates: start: 20020101, end: 20030101
  16. METOPROLOL [Concomitant]
  17. RAMIPRIL [Concomitant]
  18. ACETYLSALICYLIC ACID SRT [Concomitant]
  19. SIMVASTATIN [Concomitant]
  20. CO-TRIMOXAZOLE [Concomitant]
     Indication: PROPHYLAXIS

REACTIONS (9)
  - ACUTE CORONARY SYNDROME [None]
  - ANGINA PECTORIS [None]
  - DRUG RESISTANCE [None]
  - ERECTILE DYSFUNCTION [None]
  - HEPATITIS B [None]
  - HERPES SIMPLEX [None]
  - LYMPHADENOPATHY [None]
  - PSORIASIS [None]
  - PYREXIA [None]
